FAERS Safety Report 20539149 (Version 1)
Quarter: 2022Q1

REPORT INFORMATION
  Report Type: Spontaneous
  Country: ES (occurrence: ES)
  Receive Date: 20220302
  Receipt Date: 20220302
  Transmission Date: 20220423
  Serious: Yes (Hospitalization)
  Sender: FDA-Public Use
  Company Number: ES-JNJFOC-20210937994

PATIENT
  Age: 61 Year
  Sex: Male

DRUGS (2)
  1. STELARA [Suspect]
     Active Substance: USTEKINUMAB
     Indication: Psoriatic arthropathy
     Route: 058
  2. DIAZEPAM [Concomitant]
     Active Substance: DIAZEPAM

REACTIONS (1)
  - Granulomatosis with polyangiitis [Unknown]
